FAERS Safety Report 6639858-4 (Version None)
Quarter: 2010Q1

REPORT INFORMATION
  Report Type: 
  Country: None (occurrence: None)
  Receive Date: 20100315
  Receipt Date: 20100302
  Transmission Date: 20100710
  Serious: Yes (Hospitalization)
  Sender: FDA-Public Use
  Company Number: 1000011813

PATIENT
  Age: 99 Year
  Sex: Female
  Weight: 50 kg

DRUGS (4)
  1. ESCITALOPRAM [Suspect]
     Indication: ABNORMAL BEHAVIOUR
     Dosage: 5 MG (5 MG, 1 IN 1 D), ORAL
     Route: 048
     Dates: start: 20100120, end: 20100205
  2. LAMICTAL CD [Concomitant]
  3. LEVOTHYROX [Concomitant]
  4. BUMEX [Concomitant]

REACTIONS (2)
  - LOSS OF CONSCIOUSNESS [None]
  - PETIT MAL EPILEPSY [None]
